FAERS Safety Report 8275349-5 (Version None)
Quarter: 2012Q2

REPORT INFORMATION
  Report Type: 
  Country: None (occurrence: None)
  Receive Date: 20120411
  Receipt Date: 20120410
  Transmission Date: 20120825
  Serious: Yes (Hospitalization)
  Sender: FDA-Public Use
  Company Number: IT-BAYER-2012-030519

PATIENT
  Age: 61 Year
  Sex: Male

DRUGS (1)
  1. IOPROMIDE [Suspect]
     Indication: COMPUTERISED TOMOGRAM THORAX
     Dosage: UNK UNK, ONCE
     Route: 042
     Dates: start: 20120319, end: 20120319

REACTIONS (1)
  - HAEMOLYTIC ANAEMIA [None]
